FAERS Safety Report 9756607 (Version 1)
Quarter: 2013Q4

REPORT INFORMATION
  Report Type: Spontaneous
  Country: US (occurrence: US)
  Receive Date: 20131213
  Receipt Date: 20131213
  Transmission Date: 20140711
  Serious: No
  Sender: FDA-Public Use
  Company Number: US-GLAXOSMITHKLINE-A1048218A

PATIENT
  Age: 77 Year
  Sex: Female

DRUGS (3)
  1. NICODERM CQ CLEAR 14MG [Suspect]
     Indication: SMOKING CESSATION THERAPY
     Route: 062
     Dates: start: 201302
  2. NICORETTE NICOTINE POLACRILEX LOZENGE [Suspect]
     Indication: SMOKING CESSATION THERAPY
     Route: 002
  3. NICODERM CQ 21MG [Concomitant]
     Indication: SMOKING CESSATION THERAPY
     Route: 062

REACTIONS (7)
  - Dizziness [Recovered/Resolved]
  - Nausea [Recovered/Resolved]
  - Diarrhoea [Recovered/Resolved]
  - Hypersensitivity [Recovered/Resolved]
  - Malaise [Recovered/Resolved]
  - Drug ineffective [Unknown]
  - Nicotine dependence [Not Recovered/Not Resolved]
